FAERS Safety Report 4562843-3 (Version None)
Quarter: 2005Q1

REPORT INFORMATION
  Report Type: 
  Country: None (occurrence: None)
  Receive Date: 20050121
  Receipt Date: 20050117
  Transmission Date: 20050727
  Serious: Yes (Hospitalization)
  Sender: FDA-Public Use
  Company Number: 2005PK00090

PATIENT
  Age: 26 Year
  Sex: Male

DRUGS (3)
  1. NOLVADEX [Suspect]
     Indication: INFERTILITY
     Dosage: 2 DF DAILY PO
     Route: 048
     Dates: start: 20041210, end: 20041213
  2. TRAMADOL HCL [Concomitant]
  3. SIRDALUD [Concomitant]

REACTIONS (2)
  - COMA [None]
  - EPILEPSY [None]
